FAERS Safety Report 12911895 (Version 2)
Quarter: 2016Q4

REPORT INFORMATION
  Report Type: Spontaneous
  Country: AR (occurrence: AR)
  Receive Date: 20161104
  Receipt Date: 20161110
  Transmission Date: 20170207
  Serious: Yes (Other)
  Sender: FDA-Public Use
  Company Number: AR-AMGEN-ARGSP2016153239

PATIENT

DRUGS (3)
  1. PROLIA [Suspect]
     Active Substance: DENOSUMAB
     Dosage: 60 MG, CYC
     Route: 058
     Dates: start: 20151120
  2. PROLIA [Suspect]
     Active Substance: DENOSUMAB
     Indication: OSTEOPOROSIS
     Dosage: 60 MG, UNK
     Route: 058
     Dates: start: 20151031, end: 20161001
  3. SINLIP [Concomitant]
     Dosage: UNK

REACTIONS (7)
  - Nasal ulcer [Recovering/Resolving]
  - Rash papular [Recovering/Resolving]
  - Polyarthritis [Recovering/Resolving]
  - Myalgia [Recovering/Resolving]
  - Mouth ulceration [Recovering/Resolving]
  - Rash generalised [Unknown]
  - Arthralgia [Recovering/Resolving]
